FAERS Safety Report 4531772-3 (Version None)
Quarter: 2004Q4

REPORT INFORMATION
  Report Type: 
  Country: None (occurrence: None)
  Receive Date: 20041220
  Receipt Date: 20041207
  Transmission Date: 20050328
  Serious: Yes (Life-Threatening)
  Sender: FDA-Public Use
  Company Number: PL-ROCHE-388657

PATIENT
  Age: 67 Year
  Sex: Female
  Weight: 55 kg

DRUGS (6)
  1. XELODA [Suspect]
     Indication: COLORECTAL CANCER METASTATIC
     Route: 048
     Dates: start: 20040819, end: 20040901
  2. XELODA [Suspect]
     Route: 048
     Dates: start: 20040909, end: 20041013
  3. XELODA [Suspect]
     Route: 048
     Dates: start: 20041020, end: 20041123
  4. ENARENAL [Concomitant]
     Indication: HYPERTENSION
     Dosage: REGIMEN REPORTED AS 1 TIMES 1.
     Route: 048
     Dates: start: 20010615
  5. KETONAL FORTE [Concomitant]
     Dosage: REGIMEN REPORTED AS 2 TIMES 1.
     Route: 048
     Dates: start: 20040212
  6. ESTAZOLAM [Concomitant]
     Indication: SLEEP DISORDER
     Dosage: REGIMEN REPORTED AS 1 TIMES 1
     Route: 048
     Dates: start: 20040107

REACTIONS (3)
  - ANGIONEUROTIC OEDEMA [None]
  - LARYNGEAL OEDEMA [None]
  - PALMAR-PLANTAR ERYTHRODYSAESTHESIA SYNDROME [None]
